FAERS Safety Report 15946795 (Version 2)
Quarter: 2019Q3

REPORT INFORMATION
  Report Type: Spontaneous
  Country: US (occurrence: US)
  Receive Date: 20190211
  Receipt Date: 20190826
  Transmission Date: 20191004
  Serious: No
  Sender: FDA-Public Use
  Company Number: US-PFIZER INC-2019054479

PATIENT
  Age: 14 Year
  Sex: Female

DRUGS (2)
  1. GENOTROPIN [Suspect]
     Active Substance: SOMATROPIN
     Indication: SPHINCTER OF ODDI DYSFUNCTION
  2. GENOTROPIN [Suspect]
     Active Substance: SOMATROPIN
     Indication: INFLAMMATORY BOWEL DISEASE
     Dosage: 1.8 MG, 6 DAYS A WEEK
     Dates: start: 20170920

REACTIONS (3)
  - Off label use [Unknown]
  - Insulin-like growth factor increased [Unknown]
  - Product use in unapproved indication [Unknown]

NARRATIVE: CASE EVENT DATE: 20170920
